FAERS Safety Report 6063872-3 (Version None)
Quarter: 2009Q1

REPORT INFORMATION
  Report Type: 
  Country: None (occurrence: None)
  Receive Date: 20090204
  Receipt Date: 20090126
  Transmission Date: 20090719
  Serious: Yes (Other)
  Sender: FDA-Public Use
  Company Number: GB-ABBOTT-09P-167-0499748-00

PATIENT
  Age: 59 Year
  Sex: Female

DRUGS (3)
  1. DEPAKOTE [Suspect]
     Indication: DRUG USE FOR UNKNOWN INDICATION
     Dosage: 1500 MG DAILY
     Route: 065
  2. ARIPIPRAZOLE [Suspect]
     Indication: DRUG USE FOR UNKNOWN INDICATION
     Dosage: 5 MG DAILY
     Route: 065
  3. ARIPIPRAZOLE [Suspect]
     Dosage: 15 MG DAILY
     Route: 065

REACTIONS (3)
  - AKATHISIA [None]
  - SOMNOLENCE [None]
  - VISION BLURRED [None]
